FAERS Safety Report 18811663 (Version 1)
Quarter: 2021Q1

REPORT INFORMATION
  Report Type: Spontaneous
  Country: ES (occurrence: ES)
  Receive Date: 20210129
  Receipt Date: 20210129
  Transmission Date: 20210419
  Serious: Yes (Other)
  Sender: FDA-Public Use
  Company Number: ES-VIFOR (INTERNATIONAL) INC.-VIT-2021-00817

PATIENT
  Age: 74 Year
  Sex: Male

DRUGS (7)
  1. RAMIPRIL. [Suspect]
     Active Substance: RAMIPRIL
     Indication: CARDIAC FAILURE
     Dosage: 1.25 MILLIGRAM DAILY
     Dates: start: 201709, end: 201710
  2. EPLERENONE. [Suspect]
     Active Substance: EPLERENONE
     Indication: CARDIAC FAILURE
     Dates: start: 201707, end: 201708
  3. VELTASSA [Suspect]
     Active Substance: PATIROMER
     Route: 048
     Dates: start: 201801
  4. VELTASSA [Suspect]
     Active Substance: PATIROMER
     Indication: HYPERKALAEMIA
     Dosage: 8.4 GRAM DAILY;
     Route: 048
     Dates: start: 201712
  5. ENALAPRIL [Suspect]
     Active Substance: ENALAPRIL
     Indication: CARDIAC FAILURE
     Dates: start: 201707, end: 201708
  6. NEBIVOLOL. [Concomitant]
     Active Substance: NEBIVOLOL
     Indication: CARDIAC FAILURE
     Dosage: 10 MILLIGRAM DAILY; INITIAL DOSAGE NOT STATED. UP?TITRATION OF NEBIVOLOL UP TO 10MG/DAY WAS SUCCESSF
     Dates: start: 201707
  7. CALCIUM POLYSTYRENE SULPHONATE [Suspect]
     Active Substance: CALCIUM POLYSTYRENE SULFONATE
     Indication: HYPERKALAEMIA
     Dates: start: 2017, end: 2017

REACTIONS (3)
  - Off label use [Unknown]
  - Gastric disorder [Unknown]
  - Hyperkalaemia [Recovered/Resolved]

NARRATIVE: CASE EVENT DATE: 2017
